FAERS Safety Report 10029890 (Version 1)
Quarter: 2014Q1

REPORT INFORMATION
  Report Type: Spontaneous
  Country: US (occurrence: None)
  Receive Date: 20140306
  Receipt Date: 20140306
  Transmission Date: 20141002
  Serious: Yes (Hospitalization, Other)
  Sender: FDA-Public Use
  Company Number: 163-21880-12122701

PATIENT
  Age: 84 Year
  Sex: Male
  Weight: 91.63 kg

DRUGS (13)
  1. REVLIMID (LENALIDOMIDE) (10 MILLIGRAM, CAPSULES) [Suspect]
     Indication: PLASMA CELL MYELOMA
     Dosage: 10 MG, 21 IN 28 D, PO
     Route: 048
     Dates: start: 20111027
  2. DEXAMETHASONE (DEXAMETHASONE) [Concomitant]
  3. MORPHINE SULFATE (MORPHINE SULFATE) INJECTION [Concomitant]
  4. DIPHENOXYLATE-ATROPINE (LOMOTIL) [Concomitant]
  5. COZAAR (LOSARTAN POTASSIUM) (50 MILLIGRAM, TABLETS) (LOSARTAN POTASSIUM) [Concomitant]
  6. HYDROCODONE-ACETAMINOPHEN (REMEDEINE) [Concomitant]
  7. ACYCLOVIR (ACICLOVIR) (ACICLOVIR) [Concomitant]
  8. VITAMIN D (ERGOCALCIFEROL) [Concomitant]
  9. ASPIRIN (ACETYLSALICYLIC ACID) [Concomitant]
  10. SIMVASTATIN (SIMVASTATIN) [Concomitant]
  11. LAXATIVES (LAXATIVES) [Concomitant]
  12. LISINOPRIL (LISINOPRIL) [Concomitant]
  13. ZOMETA (ZOLEDRONIC ACID) [Concomitant]

REACTIONS (3)
  - Gastrointestinal haemorrhage [None]
  - Neuropathy peripheral [None]
  - Arthralgia [None]
